FAERS Safety Report 11123616 (Version 8)
Quarter: 2018Q3

REPORT INFORMATION
  Report Type: Spontaneous
  Country: DE (occurrence: DE)
  Receive Date: 20150519
  Receipt Date: 20180914
  Transmission Date: 20181010
  Serious: Yes (Hospitalization, Other)
  Sender: FDA-Public Use
  Company Number: DE-009507513-1505DEU006598

PATIENT
  Age: 50 Year
  Sex: Female
  Weight: 71.5 kg

DRUGS (13)
  1. CUBICIN [Suspect]
     Active Substance: DAPTOMYCIN
     Indication: SOFT TISSUE INFECTION
  2. CUBICIN [Suspect]
     Active Substance: DAPTOMYCIN
     Indication: ENTEROCOCCAL INFECTION
  3. CUBICIN [Suspect]
     Active Substance: DAPTOMYCIN
     Indication: POST PROCEDURAL COMPLICATION
     Dosage: 7 MG/KG (500 MG), QD
     Route: 042
     Dates: start: 20150425, end: 20150508
  4. LINEZOLID. [Concomitant]
     Active Substance: LINEZOLID
     Indication: INFECTED SEROMA
     Dosage: 2 DF, QD
     Route: 048
     Dates: start: 20150506, end: 20150603
  5. CUBICIN [Suspect]
     Active Substance: DAPTOMYCIN
     Indication: INFECTED SEROMA
  6. MEROPENEM. [Concomitant]
     Active Substance: MEROPENEM
     Indication: INFECTED SEROMA
     Dosage: 3 DF, QD
     Route: 042
     Dates: start: 20150425, end: 20150428
  7. AUGMENTAN [Concomitant]
     Active Substance: AMOXICILLIN\CLAVULANATE POTASSIUM
     Indication: PRODUCT USED FOR UNKNOWN INDICATION
     Dosage: 3 DF, QD
     Route: 048
     Dates: start: 20150508, end: 20150603
  8. VOLTAREN [Concomitant]
     Active Substance: DICLOFENAC SODIUM
     Indication: PRODUCT USED FOR UNKNOWN INDICATION
     Dosage: AT NEED
     Route: 065
  9. CUBICIN [Suspect]
     Active Substance: DAPTOMYCIN
     Indication: STAPHYLOCOCCAL INFECTION
  10. IMIPENEM [Concomitant]
     Active Substance: IMIPENEM
     Indication: INFECTED SEROMA
     Dosage: 4 DF, QD
     Route: 042
     Dates: start: 20150429, end: 20150506
  11. ARIXTRA [Concomitant]
     Active Substance: FONDAPARINUX SODIUM
     Indication: PRODUCT USED FOR UNKNOWN INDICATION
     Dosage: 1 DF, QD
     Route: 058
     Dates: start: 20150508, end: 20150619
  12. NEXIUM [Concomitant]
     Active Substance: ESOMEPRAZOLE MAGNESIUM
     Indication: PRODUCT USED FOR UNKNOWN INDICATION
     Dosage: 1 DF, QD (DURING ANTIBIOSIS)
     Route: 048
  13. CUBICIN [Suspect]
     Active Substance: DAPTOMYCIN
     Indication: STAPHYLOCOCCAL INFECTION

REACTIONS (27)
  - C-reactive protein increased [Recovering/Resolving]
  - Respiratory rate increased [Unknown]
  - Toxicity to various agents [Unknown]
  - Tachypnoea [Unknown]
  - Asthma [Unknown]
  - Musculoskeletal pain [Unknown]
  - Dyspnoea [Unknown]
  - Breath sounds abnormal [Unknown]
  - White blood cell count increased [Recovered/Resolved]
  - Eosinophilic pneumonia [Recovered/Resolved]
  - Cough [Unknown]
  - Blood immunoglobulin E increased [Unknown]
  - Cardiomegaly [Unknown]
  - Orthostatic hypotension [Unknown]
  - Tachycardia [Unknown]
  - Asthma exercise induced [Not Recovered/Not Resolved]
  - Body temperature increased [Unknown]
  - Crepitations [Unknown]
  - Discomfort [Unknown]
  - Alveolitis [Unknown]
  - Vena cava thrombosis [Unknown]
  - Rhonchi [Unknown]
  - Lung infiltration [Unknown]
  - Haemoptysis [Unknown]
  - Dyspnoea at rest [Unknown]
  - Fatigue [Unknown]
  - Jugular vein thrombosis [Unknown]

NARRATIVE: CASE EVENT DATE: 2015
